FAERS Safety Report 16030977 (Version 12)
Quarter: 2021Q4

REPORT INFORMATION
  Report Type: Spontaneous
  Country: US (occurrence: US)
  Receive Date: 20190304
  Receipt Date: 20211025
  Transmission Date: 20220303
  Serious: No
  Sender: FDA-Public Use
  Company Number: US-PFIZER INC-2019085839

PATIENT
  Age: 5 Year
  Sex: Female
  Weight: 13.61 kg

DRUGS (6)
  1. GENOTROPIN [Suspect]
     Active Substance: SOMATROPIN
     Indication: Small for dates baby
     Dosage: 0.7 MG, DAILY
     Route: 058
     Dates: start: 201901
  2. GENOTROPIN [Suspect]
     Active Substance: SOMATROPIN
     Dosage: 0.7 MG, 1X/DAY[ONE TIME]
  3. GENOTROPIN [Suspect]
     Active Substance: SOMATROPIN
     Dosage: 0.8 MG, DAILY
     Route: 058
     Dates: start: 201901
  4. GENOTROPIN [Suspect]
     Active Substance: SOMATROPIN
     Dosage: 0.9 MG, DAILY
     Dates: start: 201901
  5. SYNTHROID [Concomitant]
     Active Substance: LEVOTHYROXINE SODIUM
     Indication: Hypothyroidism
     Dosage: 37.5 UG, 1X/DAY
  6. SOTYLIZE [Concomitant]
     Active Substance: SOTALOL HYDROCHLORIDE
     Indication: Supraventricular tachycardia
     Dosage: UNK

REACTIONS (6)
  - Injection site bruising [Unknown]
  - Arthralgia [Unknown]
  - Device difficult to use [Unknown]
  - Device issue [Unknown]
  - Expired device used [Unknown]
  - Product prescribing issue [Unknown]

NARRATIVE: CASE EVENT DATE: 20190101
